FAERS Safety Report 24802123 (Version 1)
Quarter: 2025Q1

REPORT INFORMATION
  Report Type: Spontaneous
  Country: GR (occurrence: GR)
  Receive Date: 20250103
  Receipt Date: 20250103
  Transmission Date: 20250409
  Serious: Yes (Hospitalization, Disabling)
  Sender: ABBVIE
  Company Number: GR-LUNDBECK-DKLU4008587

PATIENT
  Age: 30 Year
  Sex: Female

DRUGS (1)
  1. CIPRALEX [Suspect]
     Active Substance: ESCITALOPRAM OXALATE
     Indication: Anxiety
     Route: 048
     Dates: start: 20140102, end: 20200505

REACTIONS (7)
  - Autonomic nervous system imbalance [Unknown]
  - Amnesia [Unknown]
  - Visual snow syndrome [Unknown]
  - Sexual dysfunction [Unknown]
  - Tinnitus [Unknown]
  - Cognitive disorder [Unknown]
  - Migraine [Unknown]

NARRATIVE: CASE EVENT DATE: 20200902
